FAERS Safety Report 12559856 (Version 1)
Quarter: 2016Q3

REPORT INFORMATION
  Report Type: Spontaneous
  Country: CN (occurrence: CN)
  Receive Date: 20160715
  Receipt Date: 20160715
  Transmission Date: 20161109
  Serious: Yes (Hospitalization)
  Sender: FDA-Public Use
  Company Number: CN-PFIZER INC-2016340460

PATIENT
  Age: 67 Year
  Sex: Male
  Weight: 70 kg

DRUGS (1)
  1. SOLU-MEDROL [Suspect]
     Active Substance: METHYLPREDNISOLONE SODIUM SUCCINATE
     Indication: WHEEZING
     Dosage: 40 MG, 3X/DAY
     Route: 041
     Dates: start: 20160319, end: 20160321

REACTIONS (4)
  - Poor quality sleep [Unknown]
  - Language disorder [Recovering/Resolving]
  - Irritability [Unknown]
  - Mental disorder [Recovering/Resolving]

NARRATIVE: CASE EVENT DATE: 20160320
